FAERS Safety Report 17186421 (Version 1)
Quarter: 2019Q4

REPORT INFORMATION
  Report Type: Spontaneous
  Country: US (occurrence: US)
  Receive Date: 20191220
  Receipt Date: 20191220
  Transmission Date: 20200122
  Serious: No
  Sender: FDA-Public Use
  Company Number: US-TEVA-2019-US-1154819

PATIENT

DRUGS (1)
  1. ACTAVIS DEXTROAMPHETAMINE CR [Suspect]
     Active Substance: DEXTROAMPHETAMINE SULFATE

REACTIONS (2)
  - Product substitution issue [Unknown]
  - Therapeutic product effect incomplete [Unknown]
